FAERS Safety Report 6667310-9 (Version None)
Quarter: 2010Q2

REPORT INFORMATION
  Report Type: 
  Country: None (occurrence: None)
  Receive Date: 20100401
  Receipt Date: 20100401
  Transmission Date: 20101027
  Serious: Yes (Death)
  Sender: FDA-Public Use
  Company Number: None

PATIENT
  Age: 85 Year
  Sex: Female
  Weight: 70.5 kg

DRUGS (13)
  1. GEODON [Suspect]
     Indication: AGITATION
     Dosage: 10MG  ONE DOSE
     Dates: start: 20100122, end: 20100122
  2. HYDROMORPHONE HCL [Concomitant]
  3. NOVOLIN R [Concomitant]
  4. LEVEMIR [Concomitant]
  5. GLIMEPIRIDE [Concomitant]
  6. KAPIDEX [Concomitant]
  7. SERTRALINE HCL [Concomitant]
  8. DIOVAN [Concomitant]
  9. HYDROCHLOROTHIAZIDE [Concomitant]
  10. LOVENOX [Concomitant]
  11. LASIX [Concomitant]
  12. NS [Concomitant]
  13. DEXTROSE 5% [Concomitant]

REACTIONS (12)
  - AGITATION [None]
  - ANXIETY [None]
  - CARDIAC FAILURE [None]
  - DEPRESSION [None]
  - DIABETES MELLITUS [None]
  - FEMUR FRACTURE [None]
  - HEART RATE DECREASED [None]
  - HYPERTENSION [None]
  - OXYGEN SATURATION DECREASED [None]
  - PUPIL FIXED [None]
  - RESPIRATORY ARREST [None]
  - THROMBOCYTOPENIA [None]
